FAERS Safety Report 21271904 (Version 1)
Quarter: 2022Q3

REPORT INFORMATION
  Report Type: Report from Study
  Country: BR (occurrence: BR)
  Receive Date: 20220830
  Receipt Date: 20220830
  Transmission Date: 20221027
  Serious: Yes (Other)
  Sender: FDA-Public Use
  Company Number: BR-ABBVIE-22K-020-4518163-00

PATIENT
  Age: 65 Year
  Sex: Male
  Weight: 79 kg

DRUGS (1)
  1. SKYRIZI [Suspect]
     Active Substance: RISANKIZUMAB-RZAA
     Indication: Psoriasis
     Route: 058
     Dates: start: 20210107

REACTIONS (4)
  - Cerebral haemorrhage [Unknown]
  - Intracranial aneurysm [Recovering/Resolving]
  - Mobility decreased [Unknown]
  - Emotional distress [Unknown]

NARRATIVE: CASE EVENT DATE: 20211101
